FAERS Safety Report 8817585 (Version 3)
Quarter: 2014Q2

REPORT INFORMATION
  Report Type: Spontaneous
  Country: US (occurrence: US)
  Receive Date: 20121001
  Receipt Date: 20140429
  Transmission Date: 20141212
  Serious: Yes (Hospitalization)
  Sender: FDA-Public Use
  Company Number: US-BAYER-2012-099527

PATIENT
  Age: 20 Year
  Sex: Female
  Weight: 68.03 kg

DRUGS (11)
  1. YASMIN [Suspect]
     Dosage: UNK
     Dates: start: 20010101, end: 2003
  2. VALTREX [Concomitant]
  3. MAXIPIME [Concomitant]
     Dosage: UNK
     Dates: start: 20040604
  4. DOPAMINE [Concomitant]
     Dosage: UNK
     Dates: start: 20040604
  5. DEXAMETHASONE [Concomitant]
     Dosage: UNK
     Dates: start: 20040604
  6. GENTAMYCIN [Concomitant]
     Dosage: UNK
     Dates: start: 20040604
  7. STADOL [Concomitant]
     Dosage: UNK
     Dates: start: 20040604
  8. REGLAN [Concomitant]
     Dosage: UNK
     Dates: start: 20040604
  9. PERCOCET [Concomitant]
     Dosage: UNK
     Dates: start: 20040604
  10. AMBIEN [Concomitant]
     Dosage: UNK
     Dates: start: 20040604
  11. LEVAQUIN [Concomitant]

REACTIONS (9)
  - Cholecystectomy [None]
  - Cholecystitis chronic [None]
  - Pain [None]
  - Injury [None]
  - General physical health deterioration [None]
  - Emotional distress [None]
  - Anhedonia [None]
  - Anxiety [None]
  - Pain [None]
